FAERS Safety Report 20161198 (Version 1)
Quarter: 2021Q4

REPORT INFORMATION
  Report Type: Spontaneous
  Country: NL (occurrence: NL)
  Receive Date: 20211208
  Receipt Date: 20211208
  Transmission Date: 20220303
  Serious: Yes (Disabling)
  Sender: FDA-Public Use
  Company Number: None

PATIENT
  Age: 77 Year
  Sex: Female
  Weight: 78 kg

DRUGS (3)
  1. CLOPIDOGREL [Suspect]
     Active Substance: CLOPIDOGREL BISULFATE
     Indication: Cerebrovascular accident
     Dosage: 2 DOSES PER DAY SO 150 MG, CLOPIDOGREL TABLET 75MG / BRAND NAME NOT SPECIFIED, THERAPY END DATE: ASK
     Route: 065
     Dates: start: 20200907
  2. AMLODIPINE [Concomitant]
     Active Substance: AMLODIPINE BESYLATE
     Dosage: 10 MG, AMLODIPINE TABLET 10MG / BRAND NAME NOT SPECIFIED, THERAPY START AND END DATE: ASKU
  3. VALSARTAN [Concomitant]
     Active Substance: VALSARTAN
     Dosage: 80 MG, THERAPY START AND END DATE: ASKU, VALSARTAN TABLET COATED 80MG / BRAND NAME NOT SPECIFIED

REACTIONS (2)
  - Arthralgia [Recovering/Resolving]
  - Polyarthritis [Recovering/Resolving]

NARRATIVE: CASE EVENT DATE: 20210121
